FAERS Safety Report 7871559-7 (Version None)
Quarter: 2011Q4

REPORT INFORMATION
  Report Type: 
  Country: None (occurrence: None)
  Receive Date: 20111029
  Receipt Date: 20110304
  Transmission Date: 20120403
  Serious: Yes (Other)
  Sender: FDA-Public Use
  Company Number: US-AMGEN-KDL370386

PATIENT
  Age: 27 Year
  Sex: Female

DRUGS (5)
  1. PRENATAL VITAMINS                  /01549301/ [Concomitant]
     Dosage: UNK UNK, QD
     Route: 048
  2. ENBREL [Suspect]
     Indication: PSORIASIS
     Dosage: 50 MG, QWK
     Route: 058
     Dates: start: 20050201
  3. ENBREL [Suspect]
     Dosage: 25 MG, QWK
     Route: 058
  4. METOCLOPRAMIDE [Concomitant]
     Dosage: 10 MG, QD
     Route: 048
  5. ATENOLOL [Concomitant]
     Dosage: 50 MG, QD
     Route: 048
     Dates: start: 20050201

REACTIONS (4)
  - BETA HAEMOLYTIC STREPTOCOCCAL INFECTION [None]
  - SINUSITIS [None]
  - GESTATIONAL HYPERTENSION [None]
  - VOMITING IN PREGNANCY [None]
